FAERS Safety Report 8960882 (Version 2)
Quarter: 2013Q1

REPORT INFORMATION
  Report Type: Spontaneous
  Country: US (occurrence: US)
  Receive Date: 20121212
  Receipt Date: 20130104
  Transmission Date: 20140127
  Serious: Yes (Disabling, Other)
  Sender: FDA-Public Use
  Company Number: US-JNJFOC-20121200654

PATIENT
  Sex: Male

DRUGS (9)
  1. ELMIRON [Suspect]
     Indication: PROSTATIC DISORDER
     Dosage: ABOUT 15 YEARS
     Route: 048
     Dates: start: 19900506
  2. DITROPAN [Concomitant]
     Route: 065
  3. DOXAZOSIN [Concomitant]
     Route: 065
  4. AMITRIPTYLINE [Concomitant]
     Route: 065
  5. HYDROXYZINE [Concomitant]
     Route: 065
  6. SERTRALINE [Concomitant]
     Route: 065
  7. CLONAZEPAM [Concomitant]
     Route: 065
  8. RILUTEK [Concomitant]
     Route: 065
  9. AVODART [Concomitant]
     Route: 065

REACTIONS (2)
  - Amyotrophic lateral sclerosis [Recovering/Resolving]
  - Off label use [Not Recovered/Not Resolved]
